FAERS Safety Report 4636736-7 (Version None)
Quarter: 2005Q2

REPORT INFORMATION
  Report Type: 
  Country: None (occurrence: None)
  Receive Date: 20050414
  Receipt Date: 20050404
  Transmission Date: 20051028
  Serious: Yes (Other)
  Sender: FDA-Public Use
  Company Number: 2005054821

PATIENT
  Age: 56 Year
  Sex: Male
  Weight: 98.8842 kg

DRUGS (9)
  1. CELEBREX [Suspect]
     Indication: PAIN IN EXTREMITY
     Dosage: 200 MG (200 MG, 1 IN 1 D),
  2. CLOPIDOGREL BISULFATE [Concomitant]
  3. RAMIPRIL [Concomitant]
  4. ASPIRIN [Concomitant]
  5. NICOTINIC ACID [Concomitant]
  6. ATORVASTATIN CALCIUM [Concomitant]
  7. ASCORBIC ACID [Concomitant]
  8. LORATADINE [Concomitant]
  9. SERETIDE MITE (FLUTICASONE PROPIONATE, SALMETEROL) [Concomitant]

REACTIONS (2)
  - MYOCARDIAL INFARCTION [None]
  - WEIGHT DECREASED [None]
